FAERS Safety Report 6180670-0 (Version None)
Quarter: 2009Q2

REPORT INFORMATION
  Report Type: 
  Country: None (occurrence: None)
  Receive Date: 20090423
  Receipt Date: 20090409
  Transmission Date: 20091009
  Serious: Yes (Death, Hospitalization)
  Sender: FDA-Public Use
  Company Number: THYM-1001012

PATIENT
  Age: 38 Year
  Sex: Female

DRUGS (9)
  1. THYMOGLOBULIN [Suspect]
     Indication: PROPHYLAXIS AGAINST TRANSPLANT REJECTION
     Dosage: 1.5 MG/KG, QDX3, INTRAVENOUS; 1.5 MG/KG,
     Route: 042
     Dates: start: 20060501
  2. CAMPATH [Suspect]
     Indication: TRANSPLANT REJECTION
     Dosage: 30 MG, ONCE,
     Dates: start: 20060501
  3. METHYLPREDNISOLONE 16MG TAB [Concomitant]
  4. TACROLIMUS [Concomitant]
  5. PREDNISONE TAB [Concomitant]
  6. VORICONAZOLE (VORICONAZOLE) [Concomitant]
  7. SULFAMETHOXAZOLE AND TRIMETHOPRIM [Concomitant]
  8. GANCICLOVIR [Concomitant]
  9. AMPHOTERICIN B [Concomitant]

REACTIONS (5)
  - CATHETER SEPSIS [None]
  - LUNG INFECTION [None]
  - PNEUMONITIS [None]
  - PROGRESSIVE MULTIFOCAL LEUKOENCEPHALOPATHY [None]
  - RESPIRATORY FAILURE [None]
